FAERS Safety Report 5517927-X (Version None)
Quarter: 2007Q4

REPORT INFORMATION
  Report Type: 
  Country: None (occurrence: None)
  Receive Date: 20071107
  Receipt Date: 20070524
  Transmission Date: 20080405
  Serious: Yes (Other)
  Sender: FDA-Public Use
  Company Number: WAES 0705USA04915

PATIENT
  Age: 84 Year
  Sex: Male

DRUGS (6)
  1. MEVACOR [Suspect]
     Dosage: PO
     Route: 048
  2. KETOCONAZOLE [Suspect]
     Indication: PROSTATE CANCER
     Dosage: 400 MG/TID/PO
     Route: 048
  3. THERAPY UNSPECIFIED [Concomitant]
  4. BICALUTAMIDE [Concomitant]
  5. HYDROCORTISONE [Concomitant]
  6. LEUPROLIDE ACETATE [Concomitant]

REACTIONS (4)
  - DRUG INTERACTION [None]
  - HEPATIC STEATOSIS [None]
  - HEPATITIS [None]
  - RHABDOMYOLYSIS [None]
